FAERS Safety Report 19079339 (Version 1)
Quarter: 2021Q1

REPORT INFORMATION
  Report Type: Other
  Country: FR (occurrence: FR)
  Receive Date: 20210331
  Receipt Date: 20210331
  Transmission Date: 20210420
  Serious: Yes (Hospitalization)
  Sender: FDA-Public Use
  Company Number: FR-VALIDUS PHARMACEUTICALS LLC-FR-2021VAL000378

PATIENT
  Age: 79 Year
  Sex: Male
  Weight: 65 kg

DRUGS (5)
  1. FUROSEMIDE. [Suspect]
     Active Substance: FUROSEMIDE
     Indication: SUICIDE ATTEMPT
     Dosage: 1200 MG, UNK
     Route: 048
     Dates: start: 20180802, end: 20180802
  2. ZOPICLONE [Suspect]
     Active Substance: ZOPICLONE
     Indication: SUICIDE ATTEMPT
     Dosage: 180 MG, TOTAL
     Route: 048
     Dates: start: 20180802, end: 20180802
  3. MIANSERINE                         /00390601/ [Suspect]
     Active Substance: MIANSERIN
     Indication: SUICIDE ATTEMPT
     Dosage: 300 MG, TOTAL
     Route: 048
     Dates: start: 20180802, end: 20180802
  4. PARACETAMOL [Suspect]
     Active Substance: ACETAMINOPHEN
     Indication: SUICIDE ATTEMPT
     Dosage: 68 G, TOTAL
     Route: 048
     Dates: start: 20180802, end: 20180802
  5. GLICLAZIDE [Suspect]
     Active Substance: GLICLAZIDE
     Indication: SUICIDE ATTEMPT
     Dosage: 1800 MG, TOTAL
     Route: 048
     Dates: start: 20180802, end: 20180802

REACTIONS (6)
  - Neurological examination abnormal [Recovered/Resolved]
  - Tachycardia [Recovered/Resolved]
  - Hypoglycaemia [Recovered/Resolved]
  - Hepatic enzyme increased [Recovered/Resolved]
  - Toxicity to various agents [Recovered/Resolved]
  - Overdose [None]

NARRATIVE: CASE EVENT DATE: 20180802
